FAERS Safety Report 24098495 (Version 3)
Quarter: 2024Q3

REPORT INFORMATION
  Report Type: Spontaneous
  Country: FR (occurrence: FR)
  Receive Date: 20240716
  Receipt Date: 20240801
  Transmission Date: 20241017
  Serious: Yes (Other)
  Sender: ABBVIE
  Company Number: None

PATIENT
  Age: 64 Year
  Sex: Female
  Weight: 60 kg

DRUGS (8)
  1. DALBAVANCIN HYDROCHLORIDE [Suspect]
     Active Substance: DALBAVANCIN HYDROCHLORIDE
     Indication: Endocarditis
     Dosage: 500 MG, POWDER FOR CONCENTRATE FOR SOLUTION FOR INFUSION?FORM STRENGTH-DALBAVANCIN HCL 500MG PWD
     Route: 042
     Dates: start: 20240329, end: 20240329
  2. DALBAVANCIN HYDROCHLORIDE [Suspect]
     Active Substance: DALBAVANCIN HYDROCHLORIDE
     Indication: Endocarditis
     Dosage: 500 MG, POWDER FOR CONCENTRATE FOR SOLUTION FOR INFUSION?FORM STRENGTH-DALBAVANCIN HCL 500MG PWD
     Route: 042
     Dates: start: 20240409, end: 20240409
  3. DALBAVANCIN HYDROCHLORIDE [Suspect]
     Active Substance: DALBAVANCIN HYDROCHLORIDE
     Indication: Endocarditis
     Dosage: 500 MG, POWDER FOR CONCENTRATE FOR SOLUTION FOR INFUSION?FORM STRENGTH-DALBAVANCIN HCL 500MG PWD
     Route: 042
     Dates: start: 2024, end: 2024
  4. DALBAVANCIN HYDROCHLORIDE [Suspect]
     Active Substance: DALBAVANCIN HYDROCHLORIDE
     Indication: Endocarditis
     Dosage: 500 MG, POWDER FOR CONCENTRATE FOR SOLUTION FOR INFUSION?FORM STRENGTH-DALBAVANCIN HCL 500MG PWD
     Route: 042
     Dates: start: 20240703
  5. APIXABAN [Concomitant]
     Active Substance: APIXABAN
     Indication: Product used for unknown indication
     Dosage: FREQUENCY TEXT WAS MORNING AND EVENING
  6. FUROSEMIDE [Concomitant]
     Active Substance: FUROSEMIDE
     Indication: Product used for unknown indication
  7. CARVEDILOL [Concomitant]
     Active Substance: CARVEDILOL
     Indication: Product used for unknown indication
     Dosage: FREQUENCY TEXT WAS MORNING AND EVENING
  8. LANSOPRAZOLE [Concomitant]
     Active Substance: LANSOPRAZOLE
     Indication: Product used for unknown indication

REACTIONS (4)
  - Bicytopenia [Recovering/Resolving]
  - Anaemia [Unknown]
  - Neutropenia [Unknown]
  - Thrombocytopenia [Unknown]

NARRATIVE: CASE EVENT DATE: 20240101
